FAERS Safety Report 8017267-3 (Version None)
Quarter: 2012Q1

REPORT INFORMATION
  Report Type: 
  Country: None (occurrence: None)
  Receive Date: 20120102
  Receipt Date: 20111224
  Transmission Date: 20120608
  Serious: Yes (Other)
  Sender: FDA-Public Use
  Company Number: PHHY2011MX105044

PATIENT
  Sex: Female

DRUGS (2)
  1. IBUPROFEN (ADVIL) [Concomitant]
     Indication: HEADACHE
     Dosage: UNK UKN, UNK
  2. GILENYA [Suspect]
     Indication: MULTIPLE SCLEROSIS
     Dosage: 0.5 MG/DAY
     Route: 048
     Dates: start: 20111118

REACTIONS (4)
  - COLOUR BLINDNESS ACQUIRED [None]
  - VISUAL IMPAIRMENT [None]
  - MACULOPATHY [None]
  - VISION BLURRED [None]
